FAERS Safety Report 8921466 (Version 1)
Quarter: 2012Q4

REPORT INFORMATION
  Report Type: 
  Country: US (occurrence: US)
  Receive Date: 20121122
  Receipt Date: 20121122
  Transmission Date: 20130627
  Serious: Yes (Other)
  Sender: FDA-Public Use
  Company Number: PHEH2012US022650

PATIENT
  Sex: Female

DRUGS (4)
  1. DIOVAN [Suspect]
     Dosage: 320 mg, UNK
  2. SIMVASTATIN [Concomitant]
  3. ARICEPT [Concomitant]
  4. NAMENDA [Suspect]

REACTIONS (1)
  - Dementia Alzheimer^s type [Not Recovered/Not Resolved]
